FAERS Safety Report 8579230-3 (Version None)
Quarter: 2012Q3

REPORT INFORMATION
  Report Type: 
  Country: None (occurrence: None)
  Receive Date: 20120808
  Receipt Date: 20120801
  Transmission Date: 20120928
  Serious: Yes (Disabling, Other)
  Sender: FDA-Public Use
  Company Number: GB-PERRIGO-12GB006583

PATIENT
  Age: 70 Year
  Sex: Female
  Weight: 70 kg

DRUGS (11)
  1. ZAPAIN [Concomitant]
     Indication: PAIN
     Dosage: 2 DF, QID
     Route: 048
     Dates: start: 20100628
  2. METOCLOPRAMIDE [Concomitant]
     Indication: PRODUCT USED FOR UNKNOWN INDICATION
     Dosage: 10 MG, TID
     Route: 065
     Dates: start: 20090303, end: 20120525
  3. ADCAL D3 [Concomitant]
     Indication: OSTEOPOROSIS
     Dosage: UNK
     Route: 065
  4. RANITIDINE HYDROCHLORIDE [Suspect]
     Indication: DYSPEPSIA
     Dosage: 150 MG, BID
     Route: 048
     Dates: start: 20110916, end: 20120530
  5. BISOPROLOL FUMARATE [Concomitant]
     Indication: CARDIAC DISORDER
     Dosage: 1.25 MG, QD
     Route: 048
     Dates: start: 20110401
  6. ALENDRONATE SODIUM [Concomitant]
     Indication: OSTEOPOROSIS
     Dosage: 70 MG, WEEKLY
     Route: 048
     Dates: start: 20090223
  7. ASPIRIN [Concomitant]
     Indication: OSTEOPOROSIS
     Dosage: 75 MG, UNK
     Route: 048
     Dates: start: 20110225
  8. CALCICHEW D3 [Concomitant]
     Indication: OSTEOPOROSIS
     Dosage: UNK, TWICE DAILY
     Route: 048
     Dates: start: 20090223
  9. RAMIPRIL [Concomitant]
     Indication: CARDIAC DISORDER
     Dosage: 1.25 MG, UNK
     Route: 048
     Dates: start: 20110401
  10. ROSUVASTATIN [Concomitant]
     Indication: CARDIAC DISORDER
     Dosage: 10 MG, QD
     Route: 065
     Dates: start: 20110503
  11. FOLIC ACID [Concomitant]
     Indication: PRODUCT USED FOR UNKNOWN INDICATION
     Dosage: 5 MG, UNK
     Route: 048
     Dates: start: 20080807

REACTIONS (3)
  - HALLUCINATION, VISUAL [None]
  - ANXIETY [None]
  - DEPRESSION [None]
